FAERS Safety Report 21868152 (Version 8)
Quarter: 2024Q4

REPORT INFORMATION
  Report Type: Spontaneous
  Country: CA (occurrence: CA)
  Receive Date: 20230116
  Receipt Date: 20241009
  Transmission Date: 20250114
  Serious: Yes (Other)
  Sender: CELLTRION
  Company Number: CA-CELLTRION INC.-2022CA005821

PATIENT

DRUGS (24)
  1. INFLECTRA [Suspect]
     Active Substance: INFLIXIMAB-DYYB
     Indication: Crohn^s disease
     Dosage: 600 MG, WEEK 0, 2, 6 THEN EVERY 8 WEEKS
     Route: 042
     Dates: start: 20220216
  2. INFLECTRA [Suspect]
     Active Substance: INFLIXIMAB-DYYB
     Dosage: 600 MG, WEEK 0, 2, 6 THEN EVERY 8 WEEKS
     Route: 042
     Dates: start: 20220302
  3. INFLECTRA [Suspect]
     Active Substance: INFLIXIMAB-DYYB
     Dosage: 600 MG, WEEK 0, 2, 6 THEN EVERY 8 WEEKS
     Route: 042
     Dates: start: 20220401
  4. INFLECTRA [Suspect]
     Active Substance: INFLIXIMAB-DYYB
     Dosage: 600 MG, WEEK 0, 2, 6 THEN EVERY 8 WEEKS
     Route: 042
     Dates: start: 20220525, end: 20220525
  5. INFLECTRA [Suspect]
     Active Substance: INFLIXIMAB-DYYB
     Dosage: 600 MG, WEEK 0, 2, 6 THEN EVERY 8 WEEKS
     Route: 042
     Dates: start: 20220914
  6. INFLECTRA [Suspect]
     Active Substance: INFLIXIMAB-DYYB
     Dosage: 600 MG, WEEK 0, 2, 6 THEN EVERY 8 WEEKS
     Route: 042
     Dates: start: 20221110
  7. INFLECTRA [Suspect]
     Active Substance: INFLIXIMAB-DYYB
     Dosage: 600 MG, WEEK 0, 2, 6 THEN EVERY 8 WEEKS
     Route: 042
     Dates: start: 20230118
  8. INFLECTRA [Suspect]
     Active Substance: INFLIXIMAB-DYYB
     Dosage: 600 MG, Q8WEEKS (WEEK 0, 2, 6 THEN EVERY 8 WEEKS)
     Route: 042
     Dates: start: 20230316
  9. INFLECTRA [Suspect]
     Active Substance: INFLIXIMAB-DYYB
     Dosage: 300 MG, EVERY 4 WEEKS (PRESCRIBED 600 MG)
     Route: 042
     Dates: start: 20230511
  10. INFLECTRA [Suspect]
     Active Substance: INFLIXIMAB-DYYB
     Dosage: 600 MG, AFTER 8 WEEKS (PRESCRIBED EVERY 4 WEEKS)
     Route: 042
     Dates: start: 20230706
  11. INFLECTRA [Suspect]
     Active Substance: INFLIXIMAB-DYYB
     Dosage: 600 MG, AFTER 8 WEEKS (PRESCRIBED ARE EVERY 4 WEEKS)
     Route: 042
     Dates: start: 20230831
  12. INFLECTRA [Suspect]
     Active Substance: INFLIXIMAB-DYYB
     Dosage: 600 MG, AFTER 8 WEEKS (PRESCRIBED EVERY 4 WEEKS)
     Route: 042
     Dates: start: 20231026
  13. INFLECTRA [Suspect]
     Active Substance: INFLIXIMAB-DYYB
     Dosage: 600 MG, AFTER 8 WEEKS (PRESCRIBED EVERY 4 WEEKS)
     Route: 042
     Dates: start: 20231221
  14. INFLECTRA [Suspect]
     Active Substance: INFLIXIMAB-DYYB
     Dosage: 600 MG, AFTER 8 WEEKS (EVERY 8 WEEK)
     Route: 042
     Dates: start: 20240215
  15. INFLECTRA [Suspect]
     Active Substance: INFLIXIMAB-DYYB
     Dosage: 600 MG, AFTER 8 WEEKS
     Route: 042
     Dates: start: 20240411
  16. INFLECTRA [Suspect]
     Active Substance: INFLIXIMAB-DYYB
     Dosage: 600 MG, EVERY 8 WEEKS
     Route: 042
     Dates: start: 20240605
  17. INFLECTRA [Suspect]
     Active Substance: INFLIXIMAB-DYYB
     Dosage: 600 MG, 9 WEEKS (PRESCRIBED EVERY 8 WEEKS)
     Route: 042
     Dates: start: 20240806
  18. INFLECTRA [Suspect]
     Active Substance: INFLIXIMAB-DYYB
     Dosage: 600 MG, EVERY 8 WEEKS
     Route: 042
     Dates: start: 20240927
  19. BUPROPION [Concomitant]
     Active Substance: BUPROPION
     Dosage: UNK
  20. BUPROPION [Concomitant]
     Active Substance: BUPROPION
     Dosage: 1 DF
  21. CITALOPRAM [Concomitant]
     Active Substance: CITALOPRAM
     Dosage: UNK
  22. CITALOPRAM [Concomitant]
     Active Substance: CITALOPRAM
     Dosage: 1 DF
  23. MESALAMINE [Concomitant]
     Active Substance: MESALAMINE
     Dosage: UNK
  24. MESALAMINE [Concomitant]
     Active Substance: MESALAMINE
     Dosage: 1 DF

REACTIONS (17)
  - Weight decreased [Recovered/Resolved]
  - Anal abscess [Not Recovered/Not Resolved]
  - Drug ineffective [Unknown]
  - Drug level decreased [Unknown]
  - Condition aggravated [Recovered/Resolved]
  - Fistula [Recovered/Resolved]
  - Anal fistula [Not Recovered/Not Resolved]
  - Anal fissure [Recovered/Resolved]
  - Abscess [Recovered/Resolved]
  - Defaecation urgency [Recovered/Resolved]
  - Treatment noncompliance [Unknown]
  - Off label use [Unknown]
  - Off label use [Unknown]
  - Off label use [Unknown]
  - Intentional product use issue [Unknown]
  - Incorrect dose administered [Unknown]
  - Inappropriate schedule of product administration [Unknown]

NARRATIVE: CASE EVENT DATE: 20220101
